FAERS Safety Report 7122320-2 (Version None)
Quarter: 2010Q4

REPORT INFORMATION
  Report Type: 
  Country: None (occurrence: None)
  Receive Date: 20101124
  Receipt Date: 20101109
  Transmission Date: 20110411
  Serious: Yes (Hospitalization)
  Sender: FDA-Public Use
  Company Number: PHHY2010FR34825

PATIENT
  Sex: Female
  Weight: 66 kg

DRUGS (1)
  1. AFINITOR [Suspect]
     Indication: RENAL CANCER METASTATIC
     Dosage: 5 MG DAILY
     Dates: start: 20100105, end: 20100501

REACTIONS (2)
  - CHEST PAIN [None]
  - PULMONARY EMBOLISM [None]
